FAERS Safety Report 19811356 (Version 1)
Quarter: 2021Q3

REPORT INFORMATION
  Report Type: Spontaneous
  Country: CN (occurrence: CN)
  Receive Date: 20210909
  Receipt Date: 20210909
  Transmission Date: 20211014
  Serious: Yes (Hospitalization, Other)
  Sender: FDA-Public Use
  Company Number: CN-PFIZER INC-202101119725

PATIENT
  Age: 52 Year
  Sex: Male
  Weight: 48 kg

DRUGS (3)
  1. TAZOCIN [Suspect]
     Active Substance: PIPERACILLIN SODIUM\TAZOBACTAM SODIUM
     Indication: ANTI-INFECTIVE THERAPY
  2. SODIUM CHLORIDE. [Concomitant]
     Active Substance: SODIUM CHLORIDE
     Indication: DIABETIC FOOT
     Dosage: 250 ML, 3X/DAY
     Route: 041
     Dates: start: 20210806, end: 20210812
  3. TAZOCIN [Suspect]
     Active Substance: PIPERACILLIN SODIUM\TAZOBACTAM SODIUM
     Indication: DIABETIC FOOT
     Dosage: 4.5 G, 3X/DAY
     Route: 041
     Dates: start: 20210806, end: 20210812

REACTIONS (1)
  - Anal incontinence [Recovering/Resolving]

NARRATIVE: CASE EVENT DATE: 20210810
